FAERS Safety Report 8956534 (Version 1)
Quarter: 2012Q4

REPORT INFORMATION
  Report Type: 
  Country: CA (occurrence: CA)
  Receive Date: 20121210
  Receipt Date: 20121210
  Transmission Date: 20130627
  Serious: Yes (Life-Threatening, Hospitalization)
  Sender: FDA-Public Use
  Company Number: CA-JNJFOC-20121115230

PATIENT
  Age: 68 Year
  Weight: 88 kg

DRUGS (9)
  1. REMICADE [Suspect]
     Indication: PSORIATIC ARTHROPATHY
     Route: 042
     Dates: start: 20110315
  2. METHOTREXATE [Concomitant]
     Route: 030
  3. PREDNISONE [Concomitant]
     Route: 065
  4. WARFARIN [Concomitant]
     Route: 065
  5. RAMIPRIL [Concomitant]
     Route: 065
  6. TYLENOL 3 [Concomitant]
     Dosage: 3 - 5 tablets per day
     Route: 065
  7. CALCIUM [Concomitant]
     Route: 065
  8. VITAMIN D [Concomitant]
     Route: 065
  9. MULTIVITAMINS [Concomitant]
     Route: 065

REACTIONS (4)
  - Loss of consciousness [Unknown]
  - Aspergilloma [Unknown]
  - Hydrocephalus [Unknown]
  - Gastrointestinal haemorrhage [Unknown]
